FAERS Safety Report 11411956 (Version 1)
Quarter: 2015Q3

REPORT INFORMATION
  Report Type: Spontaneous
  Country: CA (occurrence: CA)
  Receive Date: 20150824
  Receipt Date: 20150824
  Transmission Date: 20151125
  Serious: Yes (Other)
  Sender: FDA-Public Use
  Company Number: CA-MEDA-2015080041

PATIENT
  Sex: Female

DRUGS (1)
  1. CESAMET [Suspect]
     Active Substance: NABILONE

REACTIONS (5)
  - Nausea [Unknown]
  - Suicide attempt [Unknown]
  - Intestinal obstruction [Unknown]
  - Scar [Unknown]
  - Constipation [Unknown]
